FAERS Safety Report 18107675 (Version 2)
Quarter: 2023Q4

REPORT INFORMATION
  Report Type: Spontaneous
  Country: US (occurrence: US)
  Receive Date: 20200803
  Receipt Date: 20231025
  Transmission Date: 20240110
  Serious: No
  Sender: FDA-Public Use
  Company Number: US-JNJFOC-20200801273

PATIENT
  Sex: Male

DRUGS (2)
  1. RISPERIDONE [Suspect]
     Active Substance: RISPERIDONE
     Indication: Agitation
     Dosage: HALF TABLET AT BEDTIME FOR THE FIRST WEEK, THEN TO INCREASE TO 1 TABLET AT BEDTIME THEREAFTER
     Route: 048
     Dates: start: 20100202, end: 2010
  2. RISPERIDONE [Suspect]
     Active Substance: RISPERIDONE
     Indication: Impulsive behaviour

REACTIONS (2)
  - Emotional disorder [Unknown]
  - Gynaecomastia [Unknown]
